FAERS Safety Report 24456959 (Version 1)
Quarter: 2024Q4

REPORT INFORMATION
  Report Type: Spontaneous
  Country: CH (occurrence: CH)
  Receive Date: 20241018
  Receipt Date: 20241018
  Transmission Date: 20250114
  Serious: Yes (Life-Threatening, Hospitalization, Other)
  Sender: AMGEN
  Company Number: None

PATIENT
  Age: 28 Year
  Sex: Female
  Weight: 59 kg

DRUGS (4)
  1. AIMOVIG [Interacting]
     Active Substance: ERENUMAB-AOOE
     Indication: Migraine prophylaxis
     Dosage: 1 DOSAGE FORM, QD (*ANTI-XA IU/ML)
     Route: 058
     Dates: start: 2021, end: 202404
  2. IBUPROFEN [Interacting]
     Active Substance: IBUPROFEN
     Indication: Migraine
     Dosage: UNK, PRN
     Route: 048
  3. RIZATRIPTAN BENZOATE [Interacting]
     Active Substance: RIZATRIPTAN BENZOATE
     Indication: Migraine
     Dosage: 5 MG (IF NECESSARY)
     Route: 048
     Dates: start: 2016, end: 20240605
  4. METFORMIN [Concomitant]
     Active Substance: METFORMIN HYDROCHLORIDE
     Indication: Polycystic ovarian syndrome
     Dosage: 1000 MG
     Route: 048
     Dates: start: 2016, end: 202404

REACTIONS (2)
  - Ischaemic stroke [Recovering/Resolving]
  - Vertebrobasilar artery dissection [Recovering/Resolving]

NARRATIVE: CASE EVENT DATE: 20240405
